FAERS Safety Report 7815509 (Version 3)
Quarter: 2013Q3

REPORT INFORMATION
  Report Type: Report from Study
  Country: SE (occurrence: SE)
  Receive Date: 20110216
  Receipt Date: 20130830
  Transmission Date: 20140515
  Serious: Yes (Hospitalization)
  Sender: FDA-Public Use
  Company Number: PHHO2010SE16319

PATIENT
  Age: 76 Year
  Sex: Male
  Weight: 83.6 kg

DRUGS (9)
  1. ALISKIREN [Suspect]
     Indication: CARDIOVASCULAR DISORDER
     Route: 048
     Dates: start: 20080707, end: 20101023
  2. ALISKIREN [Suspect]
     Dosage: NO TREATMENT
     Dates: start: 20101024, end: 20101025
  3. ALISKIREN [Suspect]
     Route: 048
     Dates: start: 20101026
  4. NITROGLYCERINE [Suspect]
  5. METOPROLOL [Suspect]
  6. ISRADIPINE [Suspect]
  7. FUROSEMID [Suspect]
     Indication: HYPERTENSION
  8. DOXAZOSIN [Suspect]
     Indication: HYPERTENSION
  9. KATOPIL [Suspect]
     Indication: HYPERTENSION

REACTIONS (3)
  - Presyncope [Recovered/Resolved]
  - Hypotension [Recovered/Resolved]
  - Dizziness [Recovered/Resolved]
